FAERS Safety Report 9332057 (Version 1)
Quarter: 2013Q2

REPORT INFORMATION
  Report Type: Spontaneous
  Country: US (occurrence: US)
  Receive Date: 20130605
  Receipt Date: 20130605
  Transmission Date: 20140414
  Serious: No
  Sender: FDA-Public Use
  Company Number: US-009507513-1305USA016631

PATIENT
  Sex: Female

DRUGS (1)
  1. CLARINEX-D-24 [Suspect]
     Indication: HYPERSENSITIVITY
     Dosage: 5/240 MG, QD
     Route: 048
     Dates: start: 2005

REACTIONS (1)
  - Palpitations [Recovered/Resolved]
